FAERS Safety Report 5443744-5 (Version None)
Quarter: 2007Q3

REPORT INFORMATION
  Report Type: 
  Country: None (occurrence: None)
  Receive Date: 20070905
  Receipt Date: 20070827
  Transmission Date: 20080115
  Serious: Yes (Other)
  Sender: FDA-Public Use
  Company Number: DE-ABBOTT-07P-062-0415018-00

PATIENT
  Sex: Male
  Weight: 73 kg

DRUGS (10)
  1. HUMIRA [Suspect]
     Indication: RHEUMATOID ARTHRITIS
     Route: 058
     Dates: start: 20070323
  2. METHOTREXATE [Suspect]
     Indication: RHEUMATOID ARTHRITIS
     Dosage: 10-20 MG/WO, ONGOING BUT PAUSED DURING AN UNKNOWN (SHORT) PERIOD
     Route: 042
     Dates: start: 20040101
  3. METHOTREXATE [Suspect]
     Route: 042
  4. OLMESARTAN/HCT [Concomitant]
     Indication: HYPERTENSION
     Dosage: 20 MG/12.5 MG
     Route: 048
     Dates: start: 20070501
  5. PREDNISOLONE [Concomitant]
     Indication: RHEUMATOID ARTHRITIS
     Route: 048
     Dates: start: 20040901
  6. BISOPROLOL [Concomitant]
     Indication: HYPERTENSION
     Route: 048
     Dates: start: 20061001
  7. AMLODIPINE [Concomitant]
     Indication: HYPERTENSION
     Route: 048
     Dates: start: 20061001
  8. TORSEMIDE [Concomitant]
     Indication: HYPERTENSION
     Route: 048
     Dates: start: 20070702
  9. ALLOPURINOL [Concomitant]
     Indication: GOUTY ARTHRITIS
     Route: 048
     Dates: start: 20061101
  10. ULTRACET [Concomitant]
     Indication: RHEUMATOID ARTHRITIS
     Dosage: 37.5/300
     Route: 048
     Dates: start: 20061101

REACTIONS (3)
  - BRONCHITIS [None]
  - OEDEMA PERIPHERAL [None]
  - RENAL FAILURE [None]
